FAERS Safety Report 14149067 (Version 2)
Quarter: 2018Q1

REPORT INFORMATION
  Report Type: Spontaneous
  Country: US (occurrence: US)
  Receive Date: 20171101
  Receipt Date: 20180124
  Transmission Date: 20180508
  Serious: Yes (Other)
  Sender: FDA-Public Use
  Company Number: US-REGENERON PHARMACEUTICALS, INC.-2017-24941

PATIENT

DRUGS (2)
  1. EYLEA [Suspect]
     Active Substance: AFLIBERCEPT
     Indication: DIABETIC RETINAL OEDEMA
     Dosage: LAST DOSE PRIOR TO EVENT
     Route: 031
  2. EYLEA [Suspect]
     Active Substance: AFLIBERCEPT
     Indication: DIABETIC RETINOPATHY
     Dosage: 2 MG, EVERY 3 MONTHS, OU
     Route: 031
     Dates: start: 201604

REACTIONS (1)
  - Chemotherapy [Recovered/Resolved]

NARRATIVE: CASE EVENT DATE: 20170920
